FAERS Safety Report 4588038-5 (Version None)
Quarter: 2005Q1

REPORT INFORMATION
  Report Type: 
  Country: None (occurrence: None)
  Receive Date: 20050216
  Receipt Date: 20050201
  Transmission Date: 20050727
  Serious: Yes (Other)
  Sender: FDA-Public Use
  Company Number: JP_050205787

PATIENT
  Age: 72 Year

DRUGS (3)
  1. GEMZAR [Suspect]
  2. THALIDOMIDE (THALIDOMIDE PHARMION) [Concomitant]
  3. CELECOXIB [Concomitant]

REACTIONS (6)
  - BACK PAIN [None]
  - LYMPHADENOPATHY [None]
  - PERFORMANCE STATUS DECREASED [None]
  - RENAL VESSEL DISORDER [None]
  - VENA CAVA THROMBOSIS [None]
  - VENOUS STENOSIS [None]
